FAERS Safety Report 9372972 (Version 2)
Quarter: 2013Q3

REPORT INFORMATION
  Report Type: Report from Study
  Country: BE (occurrence: BE)
  Receive Date: 20130627
  Receipt Date: 20130711
  Transmission Date: 20140515
  Serious: Yes (Other)
  Sender: FDA-Public Use
  Company Number: BE-BAYER-2013-076143

PATIENT
  Sex: Female

DRUGS (15)
  1. NEXAVAR [Suspect]
     Indication: HEPATOCELLULAR CARCINOMA
     Dosage: 400 MG, QD
     Route: 048
     Dates: start: 20130524, end: 20130614
  2. CYMBALTA [Concomitant]
  3. SOTALEX [Concomitant]
  4. ZOCOR [Concomitant]
  5. REMERGON [Concomitant]
  6. SINTROM [Concomitant]
  7. LORAMET [Concomitant]
  8. HUMULINE [INSULIN HUMAN,ISOPHANE INSULIN] [Concomitant]
  9. D-CURE [Concomitant]
  10. STEOVIT D3 [Concomitant]
  11. CORUNO [Concomitant]
  12. TRITACE [Concomitant]
  13. LASIX [Concomitant]
  14. DUROGESIC [Concomitant]
  15. PANTOPRAZOLE SODIUM [Concomitant]

REACTIONS (9)
  - Hepatocellular carcinoma [None]
  - Hypertension [None]
  - Weight decreased [None]
  - Diarrhoea [None]
  - Nausea [None]
  - Decreased appetite [None]
  - Vomiting [None]
  - Pruritus [None]
  - Stomatitis [None]
